FAERS Safety Report 5559490-3 (Version None)
Quarter: 2007Q4

REPORT INFORMATION
  Report Type: 
  Country: None (occurrence: None)
  Receive Date: 20071214
  Receipt Date: 20071001
  Transmission Date: 20080405
  Serious: No
  Sender: FDA-Public Use
  Company Number: US-ABBOTT-07P-163-0419608-00

PATIENT
  Sex: Female
  Weight: 108.6 kg

DRUGS (14)
  1. HUMIRA [Suspect]
     Indication: RHEUMATOID ARTHRITIS
     Route: 058
     Dates: start: 20061002, end: 20070901
  2. HYDROXYCHLOROQUINE PHOSPHATE [Concomitant]
     Indication: DRUG USE FOR UNKNOWN INDICATION
  3. ALLEGRA D 24 HOUR [Concomitant]
     Indication: DRUG USE FOR UNKNOWN INDICATION
  4. ALBUTEROL [Concomitant]
     Indication: DRUG USE FOR UNKNOWN INDICATION
  5. PROVITIAL [Concomitant]
     Indication: INSOMNIA
  6. RISEDRONATE SODIUM [Concomitant]
     Indication: OSTEOPOROSIS PROPHYLAXIS
  7. FUROSEMIDE [Concomitant]
     Indication: DRUG USE FOR UNKNOWN INDICATION
  8. POTASSIUM CHLORIDE [Concomitant]
     Indication: DRUG USE FOR UNKNOWN INDICATION
  9. SERTRALINE [Concomitant]
     Indication: DRUG USE FOR UNKNOWN INDICATION
  10. PROPACET 100 [Concomitant]
     Indication: PAIN
  11. ZALEPLON [Concomitant]
     Indication: INSOMNIA
  12. OXAPROZIN [Concomitant]
     Indication: DRUG USE FOR UNKNOWN INDICATION
  13. MOMETASONE FUROATE [Concomitant]
     Indication: HYPERSENSITIVITY
  14. TIZANIDINE HCL [Concomitant]
     Indication: MUSCLE SPASMS

REACTIONS (6)
  - ARTHRALGIA [None]
  - CHEST PAIN [None]
  - COUGH [None]
  - DYSPNOEA [None]
  - LACRIMATION INCREASED [None]
  - SINUSITIS [None]
